FAERS Safety Report 7215660-X (Version None)
Quarter: 2011Q1

REPORT INFORMATION
  Report Type: 
  Country: None (occurrence: None)
  Receive Date: 20110105
  Receipt Date: 20110105
  Transmission Date: 20110831
  Serious: Yes (Life-Threatening, Hospitalization)
  Sender: FDA-Public Use
  Company Number: None

PATIENT
  Age: 58 Year
  Sex: Male
  Weight: 90 kg

DRUGS (1)
  1. GLIPIZIDE [Suspect]
     Indication: DIABETES MELLITUS
     Dosage: 20 MG BID PO
     Route: 048
     Dates: start: 20091105

REACTIONS (4)
  - HYPERTENSION [None]
  - LOSS OF CONSCIOUSNESS [None]
  - HYPOGLYCAEMIA [None]
  - LETHARGY [None]
